FAERS Safety Report 12336981 (Version 3)
Quarter: 2016Q2

REPORT INFORMATION
  Report Type: Spontaneous
  Country: IT (occurrence: IT)
  Receive Date: 20160505
  Receipt Date: 20160512
  Transmission Date: 20160815
  Serious: Yes (Hospitalization, Other)
  Sender: FDA-Public Use
  Company Number: PHHY2016IT059685

PATIENT
  Age: 82 Year
  Sex: Female

DRUGS (2)
  1. METRONIDAZOLE. [Suspect]
     Active Substance: METRONIDAZOLE
     Indication: GASTROENTERITIS BACTERIAL
     Dosage: UNK, ONCE/SINGLE
     Route: 048
     Dates: start: 20160209, end: 20160209
  2. CEFTRIAXONE. [Suspect]
     Active Substance: CEFTRIAXONE
     Indication: GASTROENTERITIS BACTERIAL
     Dosage: 1 DF, ONCE/SINGLE
     Route: 065
     Dates: start: 20160209, end: 20160209

REACTIONS (2)
  - Rash [Unknown]
  - Medication error [Unknown]

NARRATIVE: CASE EVENT DATE: 20160209
